FAERS Safety Report 18584882 (Version 2)
Quarter: 2021Q1

REPORT INFORMATION
  Report Type: Spontaneous
  Country: GB (occurrence: GB)
  Receive Date: 20201207
  Receipt Date: 20210119
  Transmission Date: 20210419
  Serious: Yes (Death, Disabling, Other)
  Sender: FDA-Public Use
  Company Number: GB-MYLANLABS-2020M1094581

PATIENT
  Age: 47 Year
  Sex: Female
  Weight: 110.8 kg

DRUGS (29)
  1. LORAZEPAM. [Concomitant]
     Active Substance: LORAZEPAM
     Dosage: 1?2MG, MAX 4MG/24HRS
  2. PICOLAX                            /00362801/ [Concomitant]
     Dosage: MAX 2 SACHETS/24HRS
  3. CLOZARIL [Suspect]
     Active Substance: CLOZAPINE
     Dosage: 200 MILLIGRAM, BID
     Route: 048
     Dates: end: 20201027
  4. MULTIVITAMINS                      /00116001/ [Concomitant]
     Active Substance: VITAMINS
     Dosage: 1 TABLET OD
  5. AMLODIPINE [Concomitant]
     Active Substance: AMLODIPINE BESYLATE
     Dosage: 5 MILLIGRAM, BID
  6. HYDROCORTISON                      /00028601/ [Concomitant]
     Active Substance: HYDROCORTISONE
     Dosage: BUCCAL TABLETS 2.5MG QDS FOR 5 DAYS
  7. HALOPERIDOL. [Concomitant]
     Active Substance: HALOPERIDOL
     Dosage: 2.5?5MG, MAX 5MG/24HRS
  8. LAMOTRIGINE. [Concomitant]
     Active Substance: LAMOTRIGINE
     Dosage: 150MG ON
  9. OMEPRAZOLE. [Concomitant]
     Active Substance: OMEPRAZOLE
     Dosage: 20 MILLIGRAM, BID
  10. PROMETHAZINE [Concomitant]
     Active Substance: PROMETHAZINE HYDROCHLORIDE
     Dosage: 25?50MG, MAX 50MG/24HRS
  11. BONJELA                            /00239201/ [Concomitant]
     Dosage: UNK
  12. CLOZARIL [Suspect]
     Active Substance: CLOZAPINE
     Dosage: UNK
     Route: 048
     Dates: start: 2020
  13. FERROUS SULFATE. [Concomitant]
     Active Substance: FERROUS SULFATE
     Dosage: 200MG TDS
  14. ORLISTAT. [Concomitant]
     Active Substance: ORLISTAT
     Dosage: ORLISTAT 120MG TDS
  15. FLUCLOXACILLIN [Concomitant]
     Active Substance: FLUCLOXACILLIN
     Dosage: 500MG QDS FOR 10 DAYS
  16. DIAZEPAM. [Concomitant]
     Active Substance: DIAZEPAM
     Dosage: MAX 30MG/24HRS (INCLUDING REGULAR)
  17. SIMVASTATIN. [Concomitant]
     Active Substance: SIMVASTATIN
     Dosage: 20MG ON
  18. CLOZARIL [Suspect]
     Active Substance: CLOZAPINE
     Indication: SCHIZOPHRENIA
     Dosage: UNK
     Route: 048
     Dates: start: 20191008
  19. SERTRALINE [Concomitant]
     Active Substance: SERTRALINE HYDROCHLORIDE
     Dosage: 100MG OD
  20. FLEXITOL HEEL [Concomitant]
     Dosage: TDS
  21. SENNA                              /00142201/ [Concomitant]
     Active Substance: SENNA LEAF
     Dosage: 30MG ON
  22. BISACODYL. [Concomitant]
     Active Substance: BISACODYL
     Dosage: 10MG ON
  23. DOCUSATE SODIUM. [Concomitant]
     Active Substance: DOCUSATE SODIUM
     Dosage: 100MG OD, 200MG BD
  24. CYCLIZINE [Concomitant]
     Active Substance: CYCLIZINE
     Dosage: 50MG, MAX TDS
  25. BECLOMETASONE;FORMOTEROL [Concomitant]
     Active Substance: BECLOMETHASONE\FORMOTEROL
     Dosage: INHALER 100/6 BD
  26. PARACETAMOL [Concomitant]
     Active Substance: ACETAMINOPHEN
     Dosage: 1G QDS
  27. COLECALCIFEROL [Concomitant]
     Active Substance: CHOLECALCIFEROL
     Dosage: 800 I.U. OD
  28. SALBUTAMOL [Concomitant]
     Active Substance: ALBUTEROL
     Dosage: 5MG QDS
  29. METFORMIN [Concomitant]
     Active Substance: METFORMIN HYDROCHLORIDE
     Dosage: 500MG TDS

REACTIONS (3)
  - COVID-19 [Fatal]
  - Constipation [Recovered/Resolved]
  - Schizophrenia [Unknown]

NARRATIVE: CASE EVENT DATE: 2020
